FAERS Safety Report 9886899 (Version 2)
Quarter: 2014Q1

REPORT INFORMATION
  Report Type: Report from Study
  Country: US (occurrence: US)
  Receive Date: 20140210
  Receipt Date: 20140217
  Transmission Date: 20141002
  Serious: No
  Sender: FDA-Public Use
  Company Number: US-ROCHE-1346297

PATIENT
  Age: 53 Year
  Sex: Female
  Weight: 59.01 kg

DRUGS (4)
  1. ACTEMRA [Suspect]
     Indication: RHEUMATOID ARTHRITIS
     Route: 042
     Dates: start: 20131224
  2. ACTEMRA [Suspect]
     Dosage: 8 MG/KG
     Route: 058
     Dates: start: 20140103
  3. METHOTREXATE [Concomitant]
     Route: 048
  4. PREDNISONE [Concomitant]
     Route: 048

REACTIONS (6)
  - Swelling face [Recovering/Resolving]
  - Increased upper airway secretion [Unknown]
  - Rhinorrhoea [Unknown]
  - Lacrimation increased [Unknown]
  - Eyelid margin crusting [Unknown]
  - Rash [Unknown]
